FAERS Safety Report 17176762 (Version 3)
Quarter: 2020Q1

REPORT INFORMATION
  Report Type: Report from Study
  Country: TW (occurrence: TW)
  Receive Date: 20191219
  Receipt Date: 20200102
  Transmission Date: 20200409
  Serious: Yes (Hospitalization)
  Sender: FDA-Public Use
  Company Number: TW-ALEXION PHARMACEUTICALS INC.-A201919232

PATIENT
  Age: 49 Year
  Sex: Female
  Weight: 54 kg

DRUGS (8)
  1. ECULIZUMAB [Suspect]
     Active Substance: ECULIZUMAB
     Dosage: 1200 MG, UNK
     Route: 042
     Dates: start: 20191205
  2. MGO [Concomitant]
     Active Substance: MAGNESIUM OXIDE
     Indication: CONSTIPATION
     Dosage: 250
     Route: 048
     Dates: start: 20170124
  3. ECULIZUMAB [Suspect]
     Active Substance: ECULIZUMAB
     Dosage: 240 MG, UNK
     Route: 042
     Dates: start: 20191121, end: 20191121
  4. VITAMIN D3 [Concomitant]
     Active Substance: CHOLECALCIFEROL
     Indication: SUPPLEMENTATION THERAPY
     Dosage: 0.25
     Route: 048
     Dates: start: 20170124
  5. ECULIZUMAB [Suspect]
     Active Substance: ECULIZUMAB
     Indication: NEUROMYELITIS OPTICA SPECTRUM DISORDER
     Dosage: 240 MG, UNK
     Route: 042
     Dates: start: 20180605, end: 20180605
  6. DONISON [Concomitant]
     Indication: PROPHYLAXIS
     Dosage: 12.5
     Route: 048
     Dates: start: 20170113
  7. SILENCE                            /00273201/ [Concomitant]
     Indication: PANIC DISORDER
     Dosage: 2 MG, QD
     Route: 048
     Dates: start: 20170124
  8. THROUGH [Concomitant]
     Indication: CONSTIPATION
     Dosage: 24
     Route: 048
     Dates: start: 20170124

REACTIONS (1)
  - Pneumonia influenzal [Recovered/Resolved]

NARRATIVE: CASE EVENT DATE: 20191211
